FAERS Safety Report 8841705 (Version 1)
Quarter: 2012Q4

REPORT INFORMATION
  Report Type: Spontaneous
  Country: US (occurrence: None)
  Receive Date: 20121011
  Receipt Date: 20121011
  Transmission Date: 20130627
  Serious: Yes (Other)
  Sender: FDA-Public Use
  Company Number: 001369369A

PATIENT
  Age: 35 Year
  Sex: Female

DRUGS (5)
  1. VITA CLEAR VITAMINS [Suspect]
     Dosage: Once daily oral
     Route: 048
     Dates: start: 20120917, end: 20120918
  2. PROACTIV RENEWING CLEANSER [Suspect]
     Dosage: Once daily dermal
     Dates: start: 20120917, end: 20120918
  3. PROACTIV REPAIRING TREATMENT [Suspect]
     Dosage: Once daily dermal
     Dates: start: 20120917, end: 20120918
  4. TRAMADOL [Concomitant]
  5. EPIPEN [Concomitant]

REACTIONS (4)
  - Dyspnoea [None]
  - Eyelid oedema [None]
  - Eyelid ptosis [None]
  - Swelling face [None]
